FAERS Safety Report 5671282-3 (Version None)
Quarter: 2008Q1

REPORT INFORMATION
  Report Type: 
  Country: None (occurrence: None)
  Receive Date: 20080318
  Receipt Date: 20080313
  Transmission Date: 20080703
  Serious: Yes (Other)
  Sender: FDA-Public Use
  Company Number: AU-BRISTOL-MYERS SQUIBB COMPANY-14115448

PATIENT
  Sex: Female

DRUGS (3)
  1. STAVUDINE [Suspect]
     Route: 048
     Dates: start: 20040515, end: 20040730
  2. VIREAD [Suspect]
     Route: 048
     Dates: start: 20040515, end: 20040630
  3. LAMIVUDINE [Suspect]
     Dates: start: 20040515, end: 20040630

REACTIONS (5)
  - BACK PAIN [None]
  - GASTROINTESTINAL DISORDER [None]
  - INTERVERTEBRAL DISC PROTRUSION [None]
  - PARALYSIS [None]
  - SCIATICA [None]
